FAERS Safety Report 8548752-3 (Version None)
Quarter: 2012Q3

REPORT INFORMATION
  Report Type: 
  Country: None (occurrence: None)
  Receive Date: 20120717
  Receipt Date: 20120704
  Transmission Date: 20120928
  Serious: Yes (Hospitalization)
  Sender: FDA-Public Use
  Company Number: ACO_31051_2012

PATIENT
  Age: 50 Year
  Sex: Female

DRUGS (3)
  1. FAMPYRA (DALFAMPRIDINE) TABLET, 10 MG [Suspect]
     Indication: MULTIPLE SCLEROSIS
     Dosage: 10 MG, BID, ORAL
     Route: 048
     Dates: start: 20120120
  2. TOLPERISONE (TOLPERISONE) [Concomitant]
  3. TIZANIDINE HYDROCHLORIDE [Concomitant]

REACTIONS (1)
  - PNEUMONIA [None]
